FAERS Safety Report 8822589 (Version 1)
Quarter: 2012Q4

REPORT INFORMATION
  Report Type: 
  Country: BR (occurrence: BR)
  Receive Date: 20121003
  Receipt Date: 20121003
  Transmission Date: 20130627
  Serious: Yes (Other)
  Sender: FDA-Public Use
  Company Number: BR-B.I. PHARMACEUTICALS,INC./RIDGEFIELD-2012-BR-01100BR

PATIENT
  Sex: Female
  Weight: 64 kg

DRUGS (4)
  1. ATENSINA [Suspect]
     Indication: HYPERTENSION
     Dosage: 400 mg
     Route: 048
     Dates: start: 2011
  2. ATACAND [Suspect]
     Indication: HYPERTENSION
     Dosage: 16 mg
     Route: 048
     Dates: start: 2011
  3. PURAN T4 [Concomitant]
     Indication: HYPOTHYROIDISM
     Route: 048
  4. RETEMIC [Concomitant]
     Indication: URINARY INCONTINENCE
     Route: 048

REACTIONS (2)
  - Hypertension [Unknown]
  - Somnolence [Unknown]
